FAERS Safety Report 23224544 (Version 2)
Quarter: 2023Q4

REPORT INFORMATION
  Report Type: Other
  Country: US (occurrence: None)
  Receive Date: 20231124
  Receipt Date: 20231214
  Transmission Date: 20240110
  Serious: Yes (Death)
  Sender: FDA-Public Use
  Company Number: US-ROCHE-3451557

PATIENT
  Sex: Female

DRUGS (1)
  1. OCREVUS [Suspect]
     Active Substance: OCRELIZUMAB
     Indication: Multiple sclerosis
     Dosage: 300 MG WHICH WAS GIVEN TWICE ON TWO DIFFERENT DATES, WITH THE DOSE FOLLOWING THIS 600MG, EVERY 6 MON
     Route: 042
     Dates: start: 20200325

REACTIONS (1)
  - Encephalitis viral [Fatal]

NARRATIVE: CASE EVENT DATE: 20230817
